FAERS Safety Report 9019739 (Version 9)
Quarter: 2013Q4

REPORT INFORMATION
  Report Type: Report from Study
  Country: FR (occurrence: FR)
  Receive Date: 20130118
  Receipt Date: 20131218
  Transmission Date: 20140711
  Serious: Yes (Hospitalization, Other)
  Sender: FDA-Public Use
  Company Number: FR-ROCHE-1180759

PATIENT
  Age: 48 Year
  Sex: Female
  Weight: 114 kg

DRUGS (7)
  1. TOCILIZUMAB [Suspect]
     Indication: RHEUMATOID ARTHRITIS
     Route: 042
     Dates: start: 20120821, end: 20121217
  2. TOCILIZUMAB [Suspect]
     Route: 042
     Dates: start: 20120827, end: 20130114
  3. TOCILIZUMAB [Suspect]
     Route: 042
     Dates: start: 20121003
  4. TOCILIZUMAB [Suspect]
     Route: 042
     Dates: start: 20121119
  5. TOCILIZUMAB [Suspect]
     Route: 042
     Dates: start: 20121217
  6. METHOTREXATE [Concomitant]
     Indication: RHEUMATOID ARTHRITIS
     Route: 058
  7. CORTANCYL [Concomitant]
     Indication: RHEUMATOID ARTHRITIS
     Route: 065

REACTIONS (2)
  - Hepatocellular injury [Recovered/Resolved]
  - Rheumatoid arthritis [Recovered/Resolved]
